FAERS Safety Report 25025387 (Version 1)
Quarter: 2025Q1

REPORT INFORMATION
  Report Type: Spontaneous
  Country: US (occurrence: US)
  Receive Date: 20250228
  Receipt Date: 20250228
  Transmission Date: 20250408
  Serious: No
  Sender: MERCK SHARP & DOHME LLC
  Company Number: US-009507513-2258612

PATIENT
  Sex: Female
  Weight: 72.5 kg

DRUGS (36)
  1. SOTATERCEPT [Suspect]
     Active Substance: SOTATERCEPT
     Indication: Product used for unknown indication
  2. SOTATERCEPT [Suspect]
     Active Substance: SOTATERCEPT
  3. SOTATERCEPT [Suspect]
     Active Substance: SOTATERCEPT
  4. SOTATERCEPT [Suspect]
     Active Substance: SOTATERCEPT
  5. OXYGEN [Concomitant]
     Active Substance: OXYGEN
  6. AMBRISENTAN [Concomitant]
     Active Substance: AMBRISENTAN
  7. ZINC [Concomitant]
     Active Substance: ZINC
  8. ASCORBIC ACID [Concomitant]
     Active Substance: ASCORBIC ACID
  9. TORSEMIDE [Concomitant]
     Active Substance: TORSEMIDE
  10. COLLAGEN [Concomitant]
     Active Substance: COLLAGEN
  11. TADALAFIL [Concomitant]
     Active Substance: TADALAFIL
  12. ASPIRIN [Concomitant]
     Active Substance: ASPIRIN
  13. FUROSEMIDE [Concomitant]
     Active Substance: FUROSEMIDE
  14. FARXIGA [Concomitant]
     Active Substance: DAPAGLIFLOZIN PROPANEDIOL
  15. METOLAZONE [Concomitant]
     Active Substance: METOLAZONE
  16. DOCUSATE SODIUM [Concomitant]
     Active Substance: DOCUSATE SODIUM
  17. SPIRONOLACTONE [Concomitant]
     Active Substance: SPIRONOLACTONE
  18. GABAPENTIN [Concomitant]
     Active Substance: GABAPENTIN
  19. ONDANSETRON HYDROCHLORIDE [Concomitant]
     Active Substance: ONDANSETRON HYDROCHLORIDE
  20. TREPROSTINIL SODIUM [Suspect]
     Active Substance: TREPROSTINIL SODIUM
     Indication: Pulmonary arterial hypertension
     Route: 058
  21. TREPROSTINIL SODIUM [Suspect]
     Active Substance: TREPROSTINIL SODIUM
     Indication: Pulmonary arterial hypertension
     Route: 058
  22. TREPROSTINIL SODIUM [Suspect]
     Active Substance: TREPROSTINIL SODIUM
     Indication: Pulmonary arterial hypertension
     Route: 058
     Dates: start: 20240523
  23. JARDIANCE [Suspect]
     Active Substance: EMPAGLIFLOZIN
     Indication: Product used for unknown indication
  24. COD LIVER OIL [Concomitant]
     Active Substance: COD LIVER OIL
  25. VITAMIN D3 [Concomitant]
     Active Substance: CHOLECALCIFEROL
  26. GLUCOSAMINE SULFATE [Concomitant]
     Active Substance: GLUCOSAMINE SULFATE
  27. SODIUM CHLORIDE [Concomitant]
     Active Substance: SODIUM CHLORIDE
  28. VITAMIN B12 [Concomitant]
     Active Substance: CYANOCOBALAMIN
  29. ALBUTEROL SULFATE [Concomitant]
     Active Substance: ALBUTEROL SULFATE
  30. POTASSIUM CHLORIDE [Concomitant]
     Active Substance: POTASSIUM CHLORIDE
  31. FLUTICASONE PROPIONATE [Concomitant]
     Active Substance: FLUTICASONE PROPIONATE
  32. MAGNESIUM [Concomitant]
     Active Substance: MAGNESIUM
  33. ACETAMINOPHEN [Concomitant]
     Active Substance: ACETAMINOPHEN
  34. LORATADINE [Concomitant]
     Active Substance: LORATADINE
  35. FERROUS SULFATE [Concomitant]
     Active Substance: FERROUS SULFATE
  36. ROSUVASTATIN CALCIUM [Concomitant]
     Active Substance: ROSUVASTATIN CALCIUM

REACTIONS (1)
  - Dizziness [Unknown]
